FAERS Safety Report 6232732-7 (Version None)
Quarter: 2009Q2

REPORT INFORMATION
  Report Type: 
  Country: None (occurrence: None)
  Receive Date: 20090617
  Receipt Date: 20090605
  Transmission Date: 20091009
  Serious: Yes (Hospitalization)
  Sender: FDA-Public Use
  Company Number: IT-PFIZER INC-2009223124

PATIENT
  Age: 83 Year

DRUGS (5)
  1. SUNITINIB MALATE [Suspect]
     Indication: HEPATIC NEOPLASM MALIGNANT
     Dosage: 37.5 MG, 1X/DAY
     Route: 048
     Dates: start: 20090407, end: 20090522
  2. INSULIN [Concomitant]
     Indication: DIABETES MELLITUS
     Dosage: 30/70, 6U
     Dates: start: 19990101
  3. RAMIPRIL [Concomitant]
     Indication: HYPERTENSION
     Dosage: 5 MG, 1X/DAY
     Dates: start: 19990101
  4. AMLODIPINE [Concomitant]
     Indication: HYPERTENSION
     Dosage: 5 MG, 1X/DAY
     Dates: start: 19990101
  5. LASIX [Concomitant]
     Indication: ASCITES
     Dosage: 25 MG, 1X/DAY
     Dates: start: 20090512

REACTIONS (3)
  - ASCITES [None]
  - HYPOALBUMINAEMIA [None]
  - PROTEINURIA [None]
